FAERS Safety Report 11823072 (Version 1)
Quarter: 2015Q4

REPORT INFORMATION
  Report Type: Spontaneous
  Country: BR (occurrence: BR)
  Receive Date: 20151210
  Receipt Date: 20151210
  Transmission Date: 20160305
  Serious: Yes (Death, Other)
  Sender: FDA-Public Use
  Company Number: BR-PFIZER INC-2015235971

PATIENT

DRUGS (2)
  1. FRAGMIN [Suspect]
     Active Substance: DALTEPARIN SODIUM
     Indication: HYPERCOAGULATION
     Dosage: UNK, 2X/DAY
     Route: 064
     Dates: start: 20150219, end: 20150719
  2. VITAMIN B12 [Concomitant]
     Active Substance: CYANOCOBALAMIN
     Indication: VITAMIN B12 DECREASED
     Dosage: 1 PER MONTH
     Route: 064

REACTIONS (3)
  - Premature baby [Fatal]
  - Maternal exposure during pregnancy [Unknown]
  - Trisomy 18 [Unknown]
